FAERS Safety Report 6459984-2 (Version None)
Quarter: 2009Q4

REPORT INFORMATION
  Report Type: 
  Country: None (occurrence: None)
  Receive Date: 20091129
  Receipt Date: 20091117
  Transmission Date: 20100525
  Serious: Yes (Hospitalization, Other)
  Sender: FDA-Public Use
  Company Number: PHEH2009US15943

PATIENT
  Sex: Female
  Weight: 66.667 kg

DRUGS (13)
  1. EXJADE [Suspect]
     Indication: MYELODYSPLASTIC SYNDROME
     Dosage: 1500 MG, QD
     Route: 048
     Dates: start: 20061015
  2. EXJADE [Suspect]
     Indication: IRON OVERLOAD
  3. COREG [Concomitant]
     Dosage: 12.5 MG, BID
     Route: 048
  4. VITAMIN D [Concomitant]
  5. NITROGLYCERIN [Concomitant]
     Dosage: UNK
  6. MECLIZINE [Concomitant]
     Dosage: 12.5 MG, PRN
     Route: 048
  7. LEXAPRO [Concomitant]
  8. ALLOPURINOL [Concomitant]
     Dosage: 300 MG, QD
     Route: 048
  9. MIRTAZAPINE [Concomitant]
     Dosage: 15 MG, QD
     Route: 048
  10. COLCHICINE [Concomitant]
     Dosage: 0.6 MG, BID
     Route: 048
  11. PRILOSEC [Concomitant]
     Dosage: 20 MG, QD
     Route: 048
  12. HYCOMINE [Concomitant]
     Dosage: 4 TIMES/DAY
  13. ALBUTEROL [Concomitant]
     Dosage: 4 TIMES/DAY

REACTIONS (17)
  - ABDOMINAL DISTENSION [None]
  - ABDOMINAL PAIN [None]
  - ASCITES [None]
  - CARDIAC FAILURE CONGESTIVE [None]
  - CARDIOMYOPATHY [None]
  - CHEST PAIN [None]
  - CONCOMITANT DISEASE PROGRESSION [None]
  - DYSPNOEA [None]
  - EJECTION FRACTION DECREASED [None]
  - HEPATOMEGALY [None]
  - NAUSEA [None]
  - PAIN [None]
  - PANCYTOPENIA [None]
  - PYREXIA [None]
  - RALES [None]
  - RENAL ATROPHY [None]
  - SPLENOMEGALY [None]
